FAERS Safety Report 19629996 (Version 2)
Quarter: 2023Q1

REPORT INFORMATION
  Report Type: Spontaneous
  Country: US (occurrence: US)
  Receive Date: 20210729
  Receipt Date: 20230323
  Transmission Date: 20230418
  Serious: Yes (Death, Other)
  Sender: FDA-Public Use
  Company Number: US-GLAXOSMITHKLINE-US2021GSK162636

PATIENT
  Sex: Male

DRUGS (6)
  1. ZANTAC [Suspect]
     Active Substance: RANITIDINE HYDROCHLORIDE
     Indication: Gastric ulcer
     Dosage: 75 MG
     Route: 065
     Dates: start: 1983, end: 2020
  2. ZANTAC [Suspect]
     Active Substance: RANITIDINE HYDROCHLORIDE
     Indication: Ulcer
     Dosage: 75 MG, QD
     Route: 065
     Dates: start: 198401, end: 202001
  3. RANITIDINE HYDROCHLORIDE [Suspect]
     Active Substance: RANITIDINE HYDROCHLORIDE
     Indication: Gastric ulcer
     Dosage: 75 MG
     Route: 065
     Dates: start: 1983, end: 2020
  4. RANITIDINE HYDROCHLORIDE [Suspect]
     Active Substance: RANITIDINE HYDROCHLORIDE
     Indication: Ulcer
     Dosage: 75 MG, QD
     Route: 065
     Dates: start: 198401, end: 202001
  5. ZANTAC [Suspect]
     Active Substance: RANITIDINE HYDROCHLORIDE
     Indication: Ulcer
     Dosage: 75 MG, QD
     Route: 065
     Dates: start: 198401, end: 202001
  6. RANITIDINE [Suspect]
     Active Substance: RANITIDINE
     Indication: Ulcer
     Dosage: 75 MG, QD
     Route: 065
     Dates: start: 198401, end: 202001

REACTIONS (2)
  - Death [Fatal]
  - Gastric cancer [Unknown]
